FAERS Safety Report 12639582 (Version 1)
Quarter: 2016Q3

REPORT INFORMATION
  Report Type: Spontaneous
  Country: GB (occurrence: GB)
  Receive Date: 20160810
  Receipt Date: 20160810
  Transmission Date: 20161109
  Serious: Yes (Hospitalization)
  Sender: FDA-Public Use
  Company Number: GB-TEVA-682421ACC

PATIENT
  Sex: Female

DRUGS (16)
  1. TIMOLOL. [Concomitant]
     Active Substance: TIMOLOL
  2. PERINDOPRIL [Concomitant]
     Active Substance: PERINDOPRIL
  3. SIMVASTATIN. [Concomitant]
     Active Substance: SIMVASTATIN
  4. WARFARIN [Concomitant]
     Active Substance: WARFARIN
  5. DILTIAZEM. [Suspect]
     Active Substance: DILTIAZEM
     Dosage: 240 MILLIGRAM DAILY;
     Route: 048
  6. FUROSEMIDE. [Concomitant]
     Active Substance: FUROSEMIDE
  7. HYDROXOCOBALAMIN [Concomitant]
     Active Substance: HYDROXOCOBALAMIN
  8. LEVOTHYROXINE. [Concomitant]
     Active Substance: LEVOTHYROXINE
  9. DIGOXIN. [Concomitant]
     Active Substance: DIGOXIN
  10. BIMATOPROST. [Concomitant]
     Active Substance: BIMATOPROST
  11. COLECALCIFEROL [Concomitant]
     Active Substance: CHOLECALCIFEROL
  12. IBUPROFEN. [Concomitant]
     Active Substance: IBUPROFEN
  13. BISOPROLOL [Suspect]
     Active Substance: BISOPROLOL
     Dosage: 2.5 MILLIGRAM DAILY;
     Route: 048
  14. CODEINE [Concomitant]
     Active Substance: CODEINE
  15. CARBAMAZEPINE. [Concomitant]
     Active Substance: CARBAMAZEPINE
  16. MIRTAZAPINE. [Concomitant]
     Active Substance: MIRTAZAPINE

REACTIONS (2)
  - Dizziness [Recovered/Resolved]
  - Fall [Recovered/Resolved]
